FAERS Safety Report 8302385-2 (Version None)
Quarter: 2012Q2

REPORT INFORMATION
  Report Type: 
  Country: None (occurrence: None)
  Receive Date: 20120420
  Receipt Date: 20120411
  Transmission Date: 20120825
  Serious: Yes (Hospitalization)
  Sender: FDA-Public Use
  Company Number: US-JNJFOC-20120405642

PATIENT
  Age: 43 Year
  Sex: Male

DRUGS (2)
  1. INVEGA [Concomitant]
     Route: 048
  2. INVEGA SUSTENNA [Suspect]
     Indication: PRODUCT USED FOR UNKNOWN INDICATION
     Route: 030

REACTIONS (3)
  - PSYCHIATRIC SYMPTOM [None]
  - AGITATION [None]
  - DRUG INEFFECTIVE [None]
